FAERS Safety Report 12186459 (Version 1)
Quarter: 2016Q1

REPORT INFORMATION
  Report Type: Spontaneous
  Country: US (occurrence: US)
  Receive Date: 20160317
  Receipt Date: 20160317
  Transmission Date: 20160526
  Serious: Yes (Other)
  Sender: FDA-Public Use
  Company Number: US-TEVA-644174USA

PATIENT
  Age: 54 Year
  Sex: Male

DRUGS (14)
  1. SERTRALINE [Concomitant]
     Active Substance: SERTRALINE HYDROCHLORIDE
     Indication: SCHIZOPHRENIA
     Route: 065
  2. CLOZAPINE. [Interacting]
     Active Substance: CLOZAPINE
     Indication: SCHIZOPHRENIA
     Route: 065
  3. PHENYLEPHRINE [Interacting]
     Active Substance: PHENYLEPHRINE\PHENYLEPHRINE HYDROCHLORIDE
     Indication: MEAN ARTERIAL PRESSURE
     Dosage: 0.4 MICROG/KG/MIN
     Route: 065
  4. NOREPINEPHRINE [Interacting]
     Active Substance: NOREPINEPHRINE\NOREPINEPHRINE BITARTRATE
     Indication: MEAN ARTERIAL PRESSURE
     Dosage: ESCALATED TO 0.5 MICROG/KG/MIN
     Route: 065
  5. NOREPINEPHRINE [Interacting]
     Active Substance: NOREPINEPHRINE\NOREPINEPHRINE BITARTRATE
     Indication: MEAN ARTERIAL PRESSURE
     Dosage: 0.4 MICROG/KG/MIN
     Route: 065
  6. EPINEPHRINE. [Interacting]
     Active Substance: EPINEPHRINE
     Indication: MEAN ARTERIAL PRESSURE
     Dosage: 0.15 MICROGRAM/KG/MIN
     Route: 065
  7. EPINEPHRINE. [Interacting]
     Active Substance: EPINEPHRINE
     Indication: MEAN ARTERIAL PRESSURE
     Dosage: 0.1 MICROGRAM/KG/MIN
     Route: 065
  8. NOREPINEPHRINE [Interacting]
     Active Substance: NOREPINEPHRINE\NOREPINEPHRINE BITARTRATE
     Indication: MEAN ARTERIAL PRESSURE
     Dosage: INITIATION AT 0.2 MICROGRAM/KG/MIN
     Route: 065
  9. SODIUM CHLORIDE. [Concomitant]
     Active Substance: SODIUM CHLORIDE
     Route: 065
  10. NOREPINEPHRINE [Interacting]
     Active Substance: NOREPINEPHRINE\NOREPINEPHRINE BITARTRATE
     Indication: MEAN ARTERIAL PRESSURE
     Dosage: 0.3 MICROG/KG/MIN
     Route: 065
  11. DOBUTAMINE [Suspect]
     Active Substance: DOBUTAMINE\DOBUTAMINE HYDROCHLORIDE
     Indication: MEAN ARTERIAL PRESSURE
     Dosage: 7.5 MICROG/KG/MIN
     Route: 065
  12. LORAZEPAM. [Concomitant]
     Active Substance: LORAZEPAM
     Indication: SCHIZOPHRENIA
     Route: 065
  13. PROPOFOL. [Concomitant]
     Active Substance: PROPOFOL
     Indication: SCHIZOPHRENIA
     Dosage: INTERMITTENTLY
     Route: 065
  14. DEXMEDETOMIDINE. [Concomitant]
     Active Substance: DEXMEDETOMIDINE
     Indication: SCHIZOPHRENIA
     Dosage: INTERMITTENTLY
     Route: 065

REACTIONS (3)
  - Drug interaction [Recovered/Resolved]
  - Tachycardia [Unknown]
  - Mean arterial pressure decreased [Recovered/Resolved]
